FAERS Safety Report 9373400 (Version 1)
Quarter: 2013Q2

REPORT INFORMATION
  Report Type: Spontaneous
  Country: FR (occurrence: FR)
  Receive Date: 20130627
  Receipt Date: 20130627
  Transmission Date: 20140414
  Serious: Yes (Hospitalization)
  Sender: FDA-Public Use
  Company Number: FR-TEVA-412348ISR

PATIENT
  Sex: Male

DRUGS (2)
  1. FUROSEMIDE TEVA 40MG [Suspect]
     Route: 048
     Dates: start: 20130403
  2. FUROSEMIDE TEVA 40MG [Suspect]
     Dosage: 5 DOSAGE FORMS DAILY;
     Route: 048

REACTIONS (8)
  - Acute pulmonary oedema [Recovered/Resolved]
  - Swelling face [Unknown]
  - Abdominal distension [Unknown]
  - Dyspnoea [Unknown]
  - Somnolence [Unknown]
  - Micturition frequency decreased [Unknown]
  - Drug ineffective [Unknown]
  - Malaise [Unknown]
